FAERS Safety Report 4973056-5 (Version None)
Quarter: 2006Q2

REPORT INFORMATION
  Report Type: 
  Country: None (occurrence: None)
  Receive Date: 20060410
  Receipt Date: 20060331
  Transmission Date: 20061013
  Serious: Yes (Other)
  Sender: FDA-Public Use
  Company Number: 2006045206

PATIENT
  Sex: Female
  Weight: 18.1439 kg

DRUGS (5)
  1. ZYRTEC [Suspect]
     Indication: HYPERSENSITIVITY
     Dosage: 5 MG (5 MG, 1 IN 1 D),
  2. PULMICORT [Concomitant]
  3. SINGULAIR [Concomitant]
  4. ANTI-ASTHMATICS (ANTI-ASTHMATICS) [Concomitant]
  5. ANTIBIOTICS (ANTIBIOTICS) [Concomitant]

REACTIONS (3)
  - EAR TUBE INSERTION [None]
  - FATIGUE [None]
  - OVERDOSE [None]
